FAERS Safety Report 16040226 (Version 1)
Quarter: 2019Q1

REPORT INFORMATION
  Report Type: Spontaneous
  Country: US (occurrence: US)
  Receive Date: 20190206
  Receipt Date: 20190206
  Transmission Date: 20190418
  Serious: Yes (Life-Threatening, Disabling, Other)
  Sender: FDA-Public Use
  Company Number: None

PATIENT
  Age: 70 Year
  Sex: Female
  Weight: 63.05 kg

DRUGS (3)
  1. MULTIPLE VITAMINS [Concomitant]
     Active Substance: VITAMINS
  2. APIDRA [Suspect]
     Active Substance: INSULIN GLULISINE
     Indication: TYPE 1 DIABETES MELLITUS
     Dates: start: 20050601
  3. LANTUS [Suspect]
     Active Substance: INSULIN GLARGINE
     Indication: TYPE 1 DIABETES MELLITUS
     Dosage: ?          QUANTITY:2X5/DAY;OTHER ROUTE:VIALS?

REACTIONS (2)
  - Shock hypoglycaemic [None]
  - Blood glucose decreased [None]

NARRATIVE: CASE EVENT DATE: 20180928
